FAERS Safety Report 9691509 (Version 2)
Quarter: 2013Q4

REPORT INFORMATION
  Report Type: Spontaneous
  Country: US (occurrence: US)
  Receive Date: 20131115
  Receipt Date: 20131125
  Transmission Date: 20140711
  Serious: Yes (Other)
  Sender: FDA-Public Use
  Company Number: US-009507513-1311USA005443

PATIENT
  Age: 5 Year
  Sex: Female

DRUGS (1)
  1. SINGULAIR [Suspect]
     Indication: MULTIPLE ALLERGIES
     Dosage: 1 PILL QD
     Route: 048

REACTIONS (3)
  - Hair growth abnormal [Unknown]
  - Precocious puberty [Unknown]
  - Skin odour abnormal [Unknown]
